FAERS Safety Report 5737689-0 (Version None)
Quarter: 2008Q2

REPORT INFORMATION
  Report Type: 
  Country: None (occurrence: None)
  Receive Date: 20080514
  Receipt Date: 20080502
  Transmission Date: 20081010
  Serious: Yes (Hospitalization)
  Sender: FDA-Public Use
  Company Number: AU-ROCHE-562327

PATIENT
  Sex: Female

DRUGS (13)
  1. PEG-INTERFERON A-2A (RO 25-8310) [Suspect]
     Indication: DRUG USE FOR UNKNOWN INDICATION
     Dosage: GIVEN WEEKLY.
     Route: 058
  2. EPOGEN [Suspect]
     Indication: DRUG USE FOR UNKNOWN INDICATION
     Dosage: DRUG REPORTED AS ERYTHROPOIETIN CT GIVEN WEEKLY.
     Route: 065
  3. RIBAVIRIN [Suspect]
     Indication: DRUG USE FOR UNKNOWN INDICATION
     Route: 065
  4. AMITRIPTYLINE HYDROCHLORIDE [Concomitant]
  5. ATENOLOL [Concomitant]
  6. DIAZEPAM [Concomitant]
  7. KARVEZIDE [Concomitant]
     Dosage: REPORTED AS KARVEZIDE 200/12.5.
  8. KARVEZIDE [Concomitant]
     Dosage: REPORTED AS KARVEZIDE 200/12.5.
  9. MERSYNDOL FORTE [Concomitant]
     Dosage: DOSAGE REPORTED AS 3 DOSE UNSPECIFIED.
  10. MERSYNDOL FORTE [Concomitant]
     Dosage: DOSAGE REPORTED AS 3 DOSE UNSPECIFIED.
  11. MERSYNDOL FORTE [Concomitant]
     Dosage: DOSAGE REPORTED AS 3 DOSE UNSPECIFIED.
  12. PANTOPRAZOLE SODIUM [Concomitant]
  13. PREMARIN [Concomitant]

REACTIONS (6)
  - DIZZINESS [None]
  - HAEMOGLOBIN DECREASED [None]
  - INTRACRANIAL PRESSURE INCREASED [None]
  - NAUSEA [None]
  - VERTIGO [None]
  - VOMITING [None]
